FAERS Safety Report 6342415-0 (Version None)
Quarter: 2009Q3

REPORT INFORMATION
  Report Type: 
  Country: None (occurrence: None)
  Receive Date: 20090908
  Receipt Date: 20071102
  Transmission Date: 20100115
  Serious: Yes (Other)
  Sender: FDA-Public Use
  Company Number: US-ASTRAZENECA-2007UW13888

PATIENT
  Age: 36 Year
  Sex: Male
  Weight: 139.7 kg

DRUGS (37)
  1. SEROQUEL [Suspect]
     Indication: BIPOLAR DISORDER
     Route: 048
     Dates: start: 19980201
  2. SEROQUEL [Suspect]
     Indication: DEPRESSION
     Route: 048
     Dates: start: 19980201
  3. SEROQUEL [Suspect]
     Indication: SCHIZOPHRENIA
     Route: 048
     Dates: start: 19980201
  4. SEROQUEL [Suspect]
     Dosage: 100-400 MG
     Route: 048
     Dates: start: 20030218
  5. SEROQUEL [Suspect]
     Dosage: 100-400 MG
     Route: 048
     Dates: start: 20030218
  6. SEROQUEL [Suspect]
     Dosage: 100-400 MG
     Route: 048
     Dates: start: 20030218
  7. RISPERDAL [Suspect]
     Dates: start: 19971201, end: 19980601
  8. RISPERDAL [Suspect]
     Dosage: 2-8 MG
     Dates: start: 19990811
  9. ZYPREXA [Suspect]
     Dates: start: 19990601, end: 19991201
  10. ZYPREXA [Suspect]
     Dates: start: 19990712
  11. PERCOCET [Concomitant]
     Dosage: AS NEEDED, 5/325 DAILY
     Route: 048
     Dates: start: 20041215
  12. HYDROCODONE [Concomitant]
     Dates: start: 20030616
  13. CYMBALTA [Concomitant]
     Dosage: 30-90 MG
     Route: 048
     Dates: start: 20060712
  14. CLONAZEPAM [Concomitant]
     Dosage: 0.5-1.5 MG
     Route: 048
     Dates: start: 20000905
  15. OMEPRAZOLE [Concomitant]
     Route: 048
     Dates: start: 20060712
  16. VICODIN [Concomitant]
     Indication: PAIN
     Dosage: 1-2 TABLETS 4-6 HOURS AS NEEDED
     Route: 048
     Dates: start: 20030131
  17. POTASSIUM CHLORIDE [Concomitant]
     Dates: start: 20060712
  18. GLUCOPHAGE XR [Concomitant]
     Route: 048
     Dates: start: 20000210
  19. PHENERGAN [Concomitant]
     Indication: NAUSEA
     Dosage: 25 MG THREE TIMES A DAY, 6 HOURS, AS NEEDED
     Route: 048
     Dates: start: 20040421
  20. PREVACID [Concomitant]
     Indication: GASTRITIS
     Dosage: 30-60 MG
     Dates: start: 19950101
  21. ADVAIR HFA [Concomitant]
     Dosage: 250/50 1 PUFF TWO TIMES A DAY
     Dates: start: 20020610
  22. CELEBREX [Concomitant]
     Route: 048
     Dates: start: 20011109
  23. ZESTRIL [Concomitant]
     Dates: start: 19991019
  24. LITHOBID [Concomitant]
     Dosage: 300-1200 MG
     Route: 048
     Dates: start: 20000905
  25. PROPRANOLOL [Concomitant]
     Dosage: 10 MG, 2 DAILY
     Dates: start: 20000905
  26. VIOXX [Concomitant]
     Dates: start: 20000905
  27. SERZONE [Concomitant]
     Dosage: 100-200 MG
     Dates: start: 19990824
  28. HYOSCYAMINE [Concomitant]
     Dosage: 0.375 TO 0.750 MG
     Dates: start: 20040329
  29. RESTORIL [Concomitant]
     Dosage: 75 MG 1 OR 2 AT NIGHT
     Dates: start: 20040329
  30. LEXAPRO [Concomitant]
     Dates: start: 20040329
  31. WELLBUTRIN SR [Concomitant]
     Dosage: 150 IN MORNING AND 1 IN AFTERNOON
     Dates: start: 20040329
  32. HALDOL [Concomitant]
     Dosage: 20 MG-60 MG
     Dates: start: 20040329
  33. AMANTADINE HCL [Concomitant]
     Dates: start: 20040329
  34. ZYRTEC-D 12 HOUR [Concomitant]
     Dosage: 1 TABLET TWO TIMES A DAY
     Dates: start: 20040329
  35. FLOMAX [Concomitant]
     Dates: start: 20040329
  36. OXYCONTIN [Concomitant]
     Dates: start: 20040329
  37. ENDOCET [Concomitant]
     Indication: PAIN
     Dosage: 5/325 1 OR 2 TABLETS Q4-Q6 AS NEEDED
     Dates: start: 20040329

REACTIONS (5)
  - DIABETIC NEUROPATHY [None]
  - HYPERGLYCAEMIA [None]
  - NEUROPATHY PERIPHERAL [None]
  - POLYNEUROPATHY [None]
  - TYPE 2 DIABETES MELLITUS [None]
